FAERS Safety Report 8699313 (Version 2)
Quarter: 2012Q4

REPORT INFORMATION
  Report Type: 
  Country: US (occurrence: US)
  Receive Date: 20120802
  Receipt Date: 20120926
  Transmission Date: 20130627
  Serious: No
  Sender: FDA-Public Use
  Company Number: US-FRI-1000037465

PATIENT
  Age: 53 Year
  Sex: Female

DRUGS (12)
  1. LEVOTHROID [Suspect]
     Indication: HYPOTHYROIDISM
     Dosage: 75 mcg
     Route: 048
     Dates: start: 1994
  2. LEVOTHROID [Suspect]
     Dosage: 75 mcg Monday-Saturday
     Dates: end: 201208
  3. LEVOTHROID [Suspect]
     Indication: HYPOTHYROIDISM
     Dosage: 75 mcg
     Route: 048
     Dates: start: 201208
  4. VITAMIN E [Concomitant]
  5. FISH OIL [Concomitant]
  6. GINKGO [Concomitant]
  7. VITAMIN B-12 [Concomitant]
  8. VITAMIN-C [Concomitant]
  9. VITAMIN D [Concomitant]
  10. MVI [Concomitant]
  11. ASPIRIN [Concomitant]
     Dosage: 81 mg
  12. LISINOPRIL [Concomitant]
     Indication: HYPERTENSION

REACTIONS (3)
  - Palpitations [Recovered/Resolved]
  - Amnesia [Not Recovered/Not Resolved]
  - Lethargy [Recovered/Resolved]
